FAERS Safety Report 8986168 (Version 2)
Quarter: 2013Q1

REPORT INFORMATION
  Report Type: Spontaneous
  Country: US (occurrence: None)
  Receive Date: 20121217
  Receipt Date: 20130115
  Transmission Date: 20140127
  Serious: Yes (Other)
  Sender: FDA-Public Use
  Company Number: ACO_33292_2012

PATIENT
  Age: 68 Year
  Sex: Male

DRUGS (2)
  1. AMPYRA (DALFAMPRIDINE) TABLET, 10MG [Suspect]
     Indication: GAIT DISTURBANCE
     Dates: start: 20100606
  2. MULTIVITAMIN (VITAMIN NOS) [Concomitant]

REACTIONS (4)
  - Paralysis [None]
  - Gait disturbance [None]
  - Walking aid user [None]
  - Adverse drug reaction [None]
